FAERS Safety Report 8586051-4 (Version None)
Quarter: 2012Q3

REPORT INFORMATION
  Report Type: 
  Country: None (occurrence: None)
  Receive Date: 20120810
  Receipt Date: 20120711
  Transmission Date: 20120928
  Serious: Yes (Other)
  Sender: FDA-Public Use
  Company Number: GB-009507513-1207GBR006800

PATIENT

DRUGS (1)
  1. IMPLANON [Suspect]
     Dosage: UNK
     Dates: start: 20070101

REACTIONS (4)
  - KELOID SCAR [None]
  - INCORRECT DRUG ADMINISTRATION DURATION [None]
  - MENSTRUATION IRREGULAR [None]
  - INFERTILITY FEMALE [None]
